FAERS Safety Report 4563862-3 (Version None)
Quarter: 2005Q1

REPORT INFORMATION
  Report Type: 
  Country: None (occurrence: None)
  Receive Date: 20050128
  Receipt Date: 20050120
  Transmission Date: 20050727
  Serious: Yes (Other)
  Sender: FDA-Public Use
  Company Number: PHEH2005US01118

PATIENT
  Age: 81 Year
  Sex: Male

DRUGS (1)
  1. ZELNORM [Suspect]
     Indication: DIARRHOEA
     Dosage: 6 MG, BID
     Route: 048
     Dates: start: 20050113, end: 20050114

REACTIONS (4)
  - ANURIA [None]
  - ASTHENIA [None]
  - DEHYDRATION [None]
  - DIARRHOEA [None]
